FAERS Safety Report 18462031 (Version 1)
Quarter: 2020Q4

REPORT INFORMATION
  Report Type: Spontaneous
  Country: CA (occurrence: CA)
  Receive Date: 20201104
  Receipt Date: 20201104
  Transmission Date: 20210114
  Serious: Yes (Death, Other)
  Sender: FDA-Public Use
  Company Number: CA-GLAXOSMITHKLINE-CA2020GSK219003

PATIENT

DRUGS (3)
  1. AVANDIA [Suspect]
     Active Substance: ROSIGLITAZONE MALEATE
     Dosage: 8 MG, QD
     Route: 048
     Dates: start: 20020820, end: 20030313
  2. AVANDIA [Suspect]
     Active Substance: ROSIGLITAZONE MALEATE
     Indication: DIABETES MELLITUS
     Dosage: 4 MG, QD
     Route: 048
     Dates: start: 20020719, end: 20100112
  3. AVANDIA [Suspect]
     Active Substance: ROSIGLITAZONE MALEATE
     Dosage: 2 MG, QD
     Route: 048
     Dates: start: 20051212, end: 20060110

REACTIONS (5)
  - Cardiac failure [Unknown]
  - Arrhythmia [Unknown]
  - Death [Fatal]
  - Cardiac failure congestive [Unknown]
  - Coronary artery disease [Unknown]
